FAERS Safety Report 6251301-6 (Version None)
Quarter: 2009Q2

REPORT INFORMATION
  Report Type: 
  Country: None (occurrence: None)
  Receive Date: 20090630
  Receipt Date: 20090626
  Transmission Date: 20091009
  Serious: Yes (Death)
  Sender: FDA-Public Use
  Company Number: PHEH2009US06772

PATIENT
  Sex: Female

DRUGS (7)
  1. GLEEVEC [Suspect]
     Indication: MYELODYSPLASTIC SYNDROME
     Dosage: 400 MG, QD
     Route: 048
     Dates: start: 20080901, end: 20081201
  2. COZAAR [Concomitant]
  3. DIGOXIN [Concomitant]
  4. COLDRICINE [Concomitant]
  5. FUROSEMIDE INTENSOL [Concomitant]
  6. METOPROLOL SUCCINATE [Concomitant]
  7. WARFARIN SODIUM [Concomitant]

REACTIONS (1)
  - DEATH [None]
